FAERS Safety Report 11281568 (Version 4)
Quarter: 2015Q3

REPORT INFORMATION
  Report Type: Report from Study
  Country: JP (occurrence: JP)
  Receive Date: 20150717
  Receipt Date: 20150827
  Transmission Date: 20151125
  Serious: Yes (Hospitalization)
  Sender: FDA-Public Use
  Company Number: JP-EISAI MEDICAL RESEARCH-EC-2015-008542

PATIENT
  Age: 38 Year
  Sex: Male
  Weight: 70 kg

DRUGS (7)
  1. KEPPRA [Interacting]
     Active Substance: LEVETIRACETAM
     Indication: EPILEPSY
     Route: 048
     Dates: start: 20130502, end: 20150714
  2. MYSTAN [Concomitant]
     Active Substance: CLOBAZAM
  3. PERAMPANEL [Suspect]
     Active Substance: PERAMPANEL
     Indication: PARTIAL SEIZURES
     Dosage: CORE STUDY
     Route: 048
     Dates: start: 20130910, end: 20140217
  4. PERAMPANEL [Interacting]
     Active Substance: PERAMPANEL
     Dosage: CONVERSION/EXTENSION
     Route: 048
     Dates: start: 20140218, end: 20140331
  5. LAMICTAL [Concomitant]
     Active Substance: LAMOTRIGINE
  6. PERAMPANEL [Interacting]
     Active Substance: PERAMPANEL
     Route: 048
     Dates: start: 20140401, end: 20150713
  7. DEPAKENE [Concomitant]
     Active Substance: VALPROIC ACID

REACTIONS (3)
  - Irritability [Recovered/Resolved]
  - Mental disorder [Recovered/Resolved]
  - Drug interaction [Recovered/Resolved]

NARRATIVE: CASE EVENT DATE: 20140210
